FAERS Safety Report 5871229-0 (Version None)
Quarter: 2008Q3

REPORT INFORMATION
  Report Type: 
  Country: None (occurrence: None)
  Receive Date: 20080902
  Receipt Date: 20080814
  Transmission Date: 20090109
  Serious: Yes (Other)
  Sender: FDA-Public Use
  Company Number: DSA_32314_2008

PATIENT
  Sex: Male

DRUGS (2)
  1. LORAZEPAM [Suspect]
     Dosage: 4 TO 5 MG (NOT THE PRESCRIBED AMOUNT) ORAL
     Route: 048
     Dates: start: 20080707, end: 20080707
  2. VALPROATE SODIUM [Suspect]
     Dosage: (1200 MG 1X NOT THE PRESCRIBED AMOUNT ORAL)
     Route: 048
     Dates: start: 20080707, end: 20080707

REACTIONS (3)
  - OVERDOSE [None]
  - SUICIDE ATTEMPT [None]
  - TACHYCARDIA [None]
